FAERS Safety Report 10191717 (Version 1)
Quarter: 2014Q2

REPORT INFORMATION
  Report Type: Spontaneous
  Country: FR (occurrence: FR)
  Receive Date: 20140523
  Receipt Date: 20140523
  Transmission Date: 20141212
  Serious: Yes (Death, Other)
  Sender: FDA-Public Use
  Company Number: FR-TEVA-482399ISR

PATIENT
  Age: 57 Year
  Sex: Female

DRUGS (17)
  1. METHOTREXATE TEVA 10 POUR CENT (5 G/ 50 ML) [Suspect]
     Dosage: 6000 MILLIGRAM DAILY; FIRST CYCLE OF CHEMOTHERAPY PROTOCOL MPV-A
     Route: 041
     Dates: start: 20140323, end: 20140323
  2. METHOTREXATE TEVA 10 POUR CENT (5 G/ 50 ML) [Suspect]
     Dosage: 6000  DAILY; FIRST CYCLE OF CHEMOTHERAPY PROTOCOL MPV-A
     Route: 041
     Dates: start: 20140410, end: 20140410
  3. METHOTREXATE TEVA 10 POUR CENT (5 G/ 50 ML) [Suspect]
     Dosage: 4620 MILLIGRAM DAILY; SECOND CYCLE OF CHEMOTHERAPY PROTOCOL MPV-A
     Route: 041
     Dates: start: 20140425, end: 20140425
  4. ROVALCYTE 450 MG [Suspect]
     Dosage: 4 TABLET DAILY; INTERACTING DRUG
     Route: 048
     Dates: start: 20140414, end: 20140427
  5. VINCRISTINE TEVA [Suspect]
     Dosage: 2 MILLIGRAM DAILY; INTERACTING DRUG
     Route: 041
     Dates: start: 20140425, end: 20140425
  6. NATULAN [Suspect]
     Dosage: 4 DOSAGE FORMS DAILY; INTERACTING DRUG
     Route: 048
     Dates: start: 20140426, end: 20140427
  7. BACTRIM [Suspect]
     Route: 048
     Dates: start: 20140327, end: 20140331
  8. BACTRIM [Suspect]
     Dosage: 1  DAILY; INTERACTING DRUG
     Route: 048
     Dates: start: 20140404, end: 20140425
  9. INEXIUM 20 MG [Suspect]
     Dosage: 1 TABLET DAILY; DRUG INTERACTING
     Route: 048
     Dates: start: 20140414
  10. EUPANTOL [Concomitant]
  11. TAZOCILLINE [Concomitant]
     Dates: start: 20140321, end: 20140326
  12. TAZOCILLINE [Concomitant]
     Dates: start: 20140329, end: 20140414
  13. CIFLOX [Concomitant]
     Dates: start: 20140329, end: 20140414
  14. CYMEVAN [Concomitant]
     Indication: CYTOMEGALOVIRUS TEST POSITIVE
     Dates: start: 20140328, end: 20140330
  15. CYMEVAN [Concomitant]
     Dates: start: 20140404, end: 20140414
  16. ZARZIO [Concomitant]
     Dates: start: 20140323, end: 20140403
  17. LOVENOX [Concomitant]

REACTIONS (9)
  - Chemotherapeutic drug level increased [Fatal]
  - Pancytopenia [Unknown]
  - Septic shock [Fatal]
  - Hepatitis toxic [Recovered/Resolved]
  - Drug interaction [None]
  - Mucosal inflammation [None]
  - Coma [None]
  - Multi-organ failure [None]
  - Cardio-respiratory arrest [None]
